FAERS Safety Report 7495451-5 (Version None)
Quarter: 2011Q2

REPORT INFORMATION
  Report Type: 
  Country: None (occurrence: None)
  Receive Date: 20110523
  Receipt Date: 20110420
  Transmission Date: 20111010
  Serious: No
  Sender: FDA-Public Use
  Company Number: US-TYCO HEALTHCARE/MALLINCKRODT-T201100822

PATIENT
  Age: 86 Year
  Sex: Female

DRUGS (1)
  1. FENTANYL-100 [Suspect]
     Indication: PRODUCT USED FOR UNKNOWN INDICATION
     Dosage: 1 PATCH EVERY 72 HOURS
     Dates: start: 20110101

REACTIONS (2)
  - WITHDRAWAL SYNDROME [None]
  - DRUG EFFECT DECREASED [None]
